FAERS Safety Report 24540256 (Version 1)
Quarter: 2024Q4

REPORT INFORMATION
  Report Type: Spontaneous
  Country: CN (occurrence: CN)
  Receive Date: 20241023
  Receipt Date: 20241023
  Transmission Date: 20250115
  Serious: Yes (Hospitalization, Other)
  Sender: GLAND PHARMA LTD
  Company Number: CN-GLANDPHARMA-CN-2024GLNLIT00886

PATIENT
  Age: 6 Year
  Sex: Male

DRUGS (5)
  1. CYTARABINE [Suspect]
     Active Substance: CYTARABINE
     Indication: B-cell type acute leukaemia
     Route: 065
  2. VINDESINE [Suspect]
     Active Substance: VINDESINE
     Indication: B-cell type acute leukaemia
     Route: 065
  3. PEGASPARGASE [Suspect]
     Active Substance: PEGASPARGASE
     Indication: B-cell type acute leukaemia
     Dosage: 2500 IU/M2
     Route: 065
  4. PREDNISONE [Suspect]
     Active Substance: PREDNISONE
     Indication: B-cell type acute leukaemia
     Route: 065
  5. IDARUBICIN [Suspect]
     Active Substance: IDARUBICIN
     Indication: B-cell type acute leukaemia
     Route: 065

REACTIONS (7)
  - Septic shock [Recovering/Resolving]
  - Respiratory failure [Recovering/Resolving]
  - Central nervous system infection [Recovering/Resolving]
  - Abdominal infection [Recovering/Resolving]
  - Systemic mycosis [Recovering/Resolving]
  - Candida infection [Recovering/Resolving]
  - Pneumonia [Recovering/Resolving]
